FAERS Safety Report 17860467 (Version 1)
Quarter: 2020Q2

REPORT INFORMATION
  Report Type: Spontaneous
  Country: AU (occurrence: AU)
  Receive Date: 20200604
  Receipt Date: 20200604
  Transmission Date: 20200714
  Serious: Yes (Other)
  Sender: FDA-Public Use
  Company Number: AU-RECKITT BENCKISER HEALTHCARE INT LIMITED-RB-87809-2020

PATIENT
  Age: 4 Year
  Sex: Male

DRUGS (1)
  1. DETTOL FIRST AID ANTISEPTIC [Suspect]
     Active Substance: CHLOROXYLENOL
     Indication: PRODUCT USED FOR UNKNOWN INDICATION
     Dosage: UNK
     Route: 048
     Dates: start: 2014

REACTIONS (2)
  - Exposure via ingestion [Unknown]
  - Vomiting [Unknown]

NARRATIVE: CASE EVENT DATE: 2014
